FAERS Safety Report 23765960 (Version 1)
Quarter: 2024Q2

REPORT INFORMATION
  Report Type: Spontaneous
  Country: US (occurrence: US)
  Receive Date: 20240421
  Receipt Date: 20240421
  Transmission Date: 20240716
  Serious: Yes (Death, Life-Threatening, Hospitalization, Other)
  Sender: FDA-Public Use
  Company Number: US-SANDOZ-SDZ2024US039976

PATIENT
  Age: 51 Year
  Sex: Female

DRUGS (2)
  1. METHOTREXATE [Suspect]
     Active Substance: METHOTREXATE
     Indication: Rheumatoid arthritis
     Dosage: 15 MG, QW
     Route: 065
  2. PREDNISONE [Concomitant]
     Active Substance: PREDNISONE
     Indication: Rheumatoid arthritis
     Dosage: 5 MG, QD
     Route: 065

REACTIONS (9)
  - Cardiac arrest [Fatal]
  - Septic shock [Fatal]
  - Toxicity to various agents [Fatal]
  - Pancytopenia [Unknown]
  - Infection in an immunocompromised host [Unknown]
  - Escherichia bacteraemia [Unknown]
  - Gastrointestinal haemorrhage [Unknown]
  - Stomatitis [Unknown]
  - Inappropriate schedule of product administration [Unknown]
